FAERS Safety Report 6594796-0 (Version None)
Quarter: 2010Q1

REPORT INFORMATION
  Report Type: 
  Country: None (occurrence: None)
  Receive Date: 20100222
  Receipt Date: 20100211
  Transmission Date: 20100710
  Serious: Yes (Hospitalization)
  Sender: FDA-Public Use
  Company Number: PHHY2009TW40786

PATIENT
  Sex: Male
  Weight: 41.5 kg

DRUGS (7)
  1. ICL670A ICL+DISTAB [Suspect]
     Indication: THALASSAEMIA BETA
     Dosage: UNK
     Dates: start: 20070201
  2. ICL670A ICL+DISTAB [Suspect]
     Dosage: 1250 MG/ DAY
     Route: 048
     Dates: start: 20090320, end: 20091030
  3. ICL670A ICL+DISTAB [Suspect]
     Dosage: UNK
     Dates: end: 20091101
  4. TESTOSTERONE [Concomitant]
  5. LEVOTHYROXINE SODIUM [Concomitant]
  6. BLOOD TRANSFUSION, AUXILIARY PRODUCTS [Concomitant]
  7. IRON CHELATOR [Concomitant]

REACTIONS (11)
  - AZOTAEMIA [None]
  - DECREASED APPETITE [None]
  - FANCONI SYNDROME ACQUIRED [None]
  - LETHARGY [None]
  - METABOLIC ACIDOSIS [None]
  - NECK PAIN [None]
  - PYREXIA [None]
  - RENAL TUBULAR ACIDOSIS [None]
  - REYE'S SYNDROME [None]
  - THROMBOCYTOPENIA [None]
  - URINE ANALYSIS ABNORMAL [None]
